FAERS Safety Report 13895987 (Version 1)
Quarter: 2017Q3

REPORT INFORMATION
  Report Type: Spontaneous
  Country: US (occurrence: US)
  Receive Date: 20170822
  Receipt Date: 20170822
  Transmission Date: 20171127
  Serious: Yes (Other)
  Sender: FDA-Public Use
  Company Number: None

PATIENT
  Age: 66 Year
  Sex: Male
  Weight: 94.95 kg

DRUGS (13)
  1. FAMOTIDINE. [Concomitant]
     Active Substance: FAMOTIDINE
  2. FLUTICASONE. [Concomitant]
     Active Substance: FLUTICASONE
  3. LIQUID VITAMINS [Concomitant]
  4. PROBIOTICS [Concomitant]
     Active Substance: PROBIOTICS NOS
  5. HYDROCODONE 10MG-- ACETAMINOPHEN 325 MG GENERIC FOR: NORCO [Suspect]
     Active Substance: ACETAMINOPHEN\HYDROCODONE BITARTRATE
     Indication: CERVICAL SPINAL STENOSIS
     Dosage: ?          QUANTITY:1 TABLET(S);?
     Route: 048
  6. BUPROPION. [Concomitant]
     Active Substance: BUPROPION
  7. LORAZEPAM. [Concomitant]
     Active Substance: LORAZEPAM
  8. CALMS FORTE 4 KIDS [Concomitant]
     Active Substance: HOMEOPATHICS
  9. TAMSULOSIN [Concomitant]
     Active Substance: TAMSULOSIN
  10. SILDENAFIL. [Concomitant]
     Active Substance: SILDENAFIL
  11. CERTRIZINE [Concomitant]
  12. GABAPENTIN. [Concomitant]
     Active Substance: GABAPENTIN
  13. ATORVISTATIN [Concomitant]

REACTIONS (6)
  - Nausea [None]
  - Product substitution issue [None]
  - Drug ineffective [None]
  - Headache [None]
  - Fatigue [None]
  - Impaired quality of life [None]

NARRATIVE: CASE EVENT DATE: 20170812
